FAERS Safety Report 17047782 (Version 1)
Quarter: 2019Q4

REPORT INFORMATION
  Report Type: Spontaneous
  Country: US (occurrence: US)
  Receive Date: 20191118
  Receipt Date: 20191118
  Transmission Date: 20200122
  Serious: Yes (Hospitalization)
  Sender: FDA-Public Use
  Company Number: None

PATIENT
  Age: 0 Day
  Sex: Male
  Weight: 3.94 kg

DRUGS (1)
  1. PHYTONADIONE. [Suspect]
     Active Substance: PHYTONADIONE
     Indication: LIVE BIRTH
     Dates: start: 20190529, end: 20190529

REACTIONS (1)
  - Jaundice neonatal [None]

NARRATIVE: CASE EVENT DATE: 20190529
